FAERS Safety Report 5789129-3 (Version None)
Quarter: 2008Q2

REPORT INFORMATION
  Report Type: 
  Country: None (occurrence: None)
  Receive Date: 20080626
  Receipt Date: 20080617
  Transmission Date: 20081010
  Serious: Yes (Other)
  Sender: FDA-Public Use
  Company Number: US-JNJFOC-20080604879

PATIENT
  Sex: Female
  Weight: 54.43 kg

DRUGS (7)
  1. DURAGESIC-100 [Suspect]
     Indication: ARTHRITIS
     Route: 062
  2. LORTAB [Concomitant]
     Indication: BREAKTHROUGH PAIN
     Route: 048
  3. PRILOSEC [Concomitant]
     Indication: OESOPHAGEAL SPASM
     Route: 048
  4. DIAZEPAM [Concomitant]
     Indication: OESOPHAGEAL SPASM
     Route: 048
  5. DIAZEPAM [Concomitant]
     Indication: ANXIETY
     Route: 048
  6. NEURONTIN [Concomitant]
     Indication: NEURALGIA
     Route: 048
  7. ROBAXIN [Concomitant]
     Indication: MUSCLE SPASMS
     Route: 048

REACTIONS (7)
  - BALANCE DISORDER [None]
  - FALL [None]
  - HAND FRACTURE [None]
  - MUSCULAR WEAKNESS [None]
  - OSTEOPOROSIS [None]
  - PHARMACEUTICAL PRODUCT COMPLAINT [None]
  - THERAPEUTIC RESPONSE DECREASED [None]
